FAERS Safety Report 23984258 (Version 6)
Quarter: 2024Q3

REPORT INFORMATION
  Report Type: Report from Study
  Country: PT (occurrence: PT)
  Receive Date: 20240618
  Receipt Date: 20240726
  Transmission Date: 20241017
  Serious: Yes (Life-Threatening, Hospitalization, Other)
  Sender: ABBVIE
  Company Number: PT-ABBVIE-5794747

PATIENT
  Age: 72 Year
  Sex: Female

DRUGS (13)
  1. CARBIDOPA\LEVODOPA [Suspect]
     Active Substance: CARBIDOPA\LEVODOPA
     Indication: Parkinson^s disease
     Dosage: 20 MG + 5 MG?FREQUENCY TEXT: MORN:8.4CC;MAINT:4.2CC/H;EXTRA:1CC
     Route: 050
     Dates: start: 20210422
  2. CARBIDOPA\LEVODOPA [Suspect]
     Active Substance: CARBIDOPA\LEVODOPA
     Dosage: 20 MG + 5 MG?LAST ADMIN DATE: 2024?FREQUENCY TEXT: MORN:19ML;MAINT:9.2ML/H;EXTRA:3CC
     Route: 050
     Dates: start: 20240528
  3. CARBIDOPA\LEVODOPA [Suspect]
     Active Substance: CARBIDOPA\LEVODOPA
     Dosage: 20 MG + 5 MG ?FREQUENCY TEXT: MORN:19ML;MAINT:9.5ML/H;EXTRA:3CC
     Route: 050
     Dates: start: 202407
  4. CARBIDOPA\LEVODOPA [Suspect]
     Active Substance: CARBIDOPA\LEVODOPA
     Dosage: 20 MG + 5 MG?FREQUENCY TEXT: MORN:17CC;MAINT:9.5CC/H;EXTRA:3CC
     Route: 050
     Dates: start: 2024, end: 202407
  5. QUETIAPINE [Concomitant]
     Active Substance: QUETIAPINE
     Indication: Product used for unknown indication
  6. QUETIAPINE [Concomitant]
     Active Substance: QUETIAPINE
     Indication: Product used for unknown indication
  7. CLOZAPINE [Concomitant]
     Active Substance: CLOZAPINE
     Indication: Hallucination, visual
     Dosage: 1 TABLET ?FORM STRENGTH: 25 MG?AT BEDTIME
     Route: 048
  8. CLOZAPINE [Concomitant]
     Active Substance: CLOZAPINE
     Indication: Hallucination, visual
     Dosage: 0.5 TABLET?FREQUENCY TEXT: AT BEDTIME?FORM STRENGTH: 25 MILLIGRAM
     Route: 065
     Dates: start: 202405
  9. SINEMET CR [Concomitant]
     Active Substance: CARBIDOPA\LEVODOPA
     Indication: Product used for unknown indication
     Dosage: 1 TABLET CR 50/200 (LEVODOPA/CARBIDOPA)?START DATE TEXT: BEFORE DUODOPA?AT BEDTIME
     Route: 048
  10. ESCITALOPRAM [Concomitant]
     Active Substance: ESCITALOPRAM OXALATE
     Indication: Product used for unknown indication
     Dosage: START DATE TEXT: BEFORE DUODOPA?1 TABLET?FORM STRENGTH: 10 MG?IN THE MORNING
     Route: 048
  11. DIAZEPAM [Concomitant]
     Active Substance: DIAZEPAM
     Indication: Hallucination, visual
     Dosage: 1 TABLET?FORM STRENGTH: 5 MG
     Route: 065
     Dates: start: 202405
  12. MIRTAZAPINE [Concomitant]
     Active Substance: MIRTAZAPINE
     Indication: Depressed mood
     Dates: start: 202406
  13. DITROPAN [Concomitant]
     Active Substance: OXYBUTYNIN CHLORIDE
     Indication: Product used for unknown indication
     Dosage: START DATE TEXT: BEFORE DUODOPA
     Route: 048

REACTIONS (11)
  - Suicide attempt [Recovered/Resolved]
  - Anxiety [Not Recovered/Not Resolved]
  - Depressed mood [Not Recovered/Not Resolved]
  - White blood cell count decreased [Recovered/Resolved]
  - Agitation [Not Recovered/Not Resolved]
  - Hallucination [Not Recovered/Not Resolved]
  - Suicide attempt [Recovered/Resolved]
  - Suicidal ideation [Not Recovered/Not Resolved]
  - Confusional state [Not Recovered/Not Resolved]
  - Unevaluable event [Not Recovered/Not Resolved]
  - Food refusal [Not Recovered/Not Resolved]

NARRATIVE: CASE EVENT DATE: 20240101
